FAERS Safety Report 5426541-6 (Version None)
Quarter: 2007Q3

REPORT INFORMATION
  Report Type: 
  Country: None (occurrence: None)
  Receive Date: 20070827
  Receipt Date: 20070815
  Transmission Date: 20080115
  Serious: Yes (Hospitalization, Disabling, Other)
  Sender: FDA-Public Use
  Company Number: US-PFIZER INC-2007043713

PATIENT
  Sex: Female

DRUGS (2)
  1. CELEBREX [Suspect]
  2. BEXTRA [Suspect]
     Indication: PAIN
     Route: 048

REACTIONS (15)
  - ARRHYTHMIA [None]
  - ARTHRALGIA [None]
  - CEREBROVASCULAR ACCIDENT [None]
  - FOOT FRACTURE [None]
  - HYPERLIPIDAEMIA [None]
  - HYPERTENSION [None]
  - JOINT DISLOCATION [None]
  - MYOCARDIAL INFARCTION [None]
  - NEPHROLITHIASIS [None]
  - ORGAN FAILURE [None]
  - PULMONARY EMBOLISM [None]
  - SKIN HYPERPIGMENTATION [None]
  - STEVENS-JOHNSON SYNDROME [None]
  - THROMBOPHLEBITIS [None]
  - THROMBOSIS [None]
